FAERS Safety Report 24592903 (Version 1)
Quarter: 2024Q4

REPORT INFORMATION
  Report Type: Spontaneous
  Country: US (occurrence: None)
  Receive Date: 20241107
  Receipt Date: 20241107
  Transmission Date: 20250115
  Serious: Yes (Hospitalization)
  Sender: Public
  Company Number: None

PATIENT
  Age: 84 Year
  Sex: Male

DRUGS (2)
  1. APIXABAN [Suspect]
     Active Substance: APIXABAN
     Indication: Deep vein thrombosis
  2. ASPIRIN [Suspect]
     Active Substance: ASPIRIN
     Dates: start: 20181030, end: 20240412

REACTIONS (7)
  - Gastrointestinal haemorrhage [None]
  - Haematemesis [None]
  - Gastritis [None]
  - Gastric polyps [None]
  - Diverticulum intestinal [None]
  - Blood creatinine increased [None]
  - Hypovolaemia [None]

NARRATIVE: CASE EVENT DATE: 20240815
